FAERS Safety Report 6760458-X (Version None)
Quarter: 2010Q2

REPORT INFORMATION
  Report Type: 
  Country: None (occurrence: None)
  Receive Date: 20100608
  Receipt Date: 20100528
  Transmission Date: 20101027
  Serious: Yes (Hospitalization, Other)
  Sender: FDA-Public Use
  Company Number: PHHY2010JP32761

PATIENT
  Age: 56 Year
  Sex: Male

DRUGS (6)
  1. CYCLOSPORINE [Suspect]
     Indication: ALLOGENIC BONE MARROW TRANSPLANTATION THERAPY
     Dosage: 10 MG/DAY
     Route: 048
  2. CYCLOSPORINE [Suspect]
     Indication: CHRONIC GRAFT VERSUS HOST DISEASE
  3. PREDNISOLONE [Concomitant]
     Indication: ALLOGENIC BONE MARROW TRANSPLANTATION THERAPY
     Dosage: 10 MG, UNK
     Route: 048
  4. PREDNISOLONE [Concomitant]
     Indication: CHRONIC GRAFT VERSUS HOST DISEASE
  5. VALACYCLOVIR [Concomitant]
     Indication: ANTIVIRAL PROPHYLAXIS
  6. POLYGAM S/D [Concomitant]

REACTIONS (8)
  - ABDOMINAL PAIN UPPER [None]
  - BLISTER [None]
  - DISSEMINATED INTRAVASCULAR COAGULATION [None]
  - HERPES ZOSTER [None]
  - LIVER INJURY [None]
  - PNEUMONIA [None]
  - PYREXIA [None]
  - RASH [None]
